FAERS Safety Report 4835435-6 (Version None)
Quarter: 2005Q4

REPORT INFORMATION
  Report Type: 
  Country: None (occurrence: None)
  Receive Date: 20051122
  Receipt Date: 20051122
  Transmission Date: 20060501
  Serious: Yes (Life-Threatening, Hospitalization)
  Sender: FDA-Public Use
  Company Number: None

PATIENT
  Age: 68 Year
  Sex: Male
  Weight: 90.7 kg

DRUGS (2)
  1. OMNIPAQUE 300 [Suspect]
     Indication: ABDOMEN SCAN
     Dosage: 100 ML ONCE IV BOLUS
     Route: 040
     Dates: start: 20051108, end: 20051108
  2. OMNIPAQUE 300 [Suspect]
     Indication: SCAN WITH CONTRAST
     Dosage: 100 ML ONCE IV BOLUS
     Route: 040
     Dates: start: 20051108, end: 20051108

REACTIONS (1)
  - RENAL FAILURE ACUTE [None]
